FAERS Safety Report 15413130 (Version 1)
Quarter: 2018Q3

REPORT INFORMATION
  Report Type: Spontaneous
  Country: FR (occurrence: FR)
  Receive Date: 20180921
  Receipt Date: 20180921
  Transmission Date: 20181010
  Serious: Yes (Hospitalization)
  Sender: FDA-Public Use
  Company Number: FR-PFIZER INC-2018375756

PATIENT
  Age: 75 Year
  Sex: Female
  Weight: 58 kg

DRUGS (4)
  1. CYTARABINE ACCORD [Suspect]
     Active Substance: CYTARABINE
     Indication: ACUTE MYELOID LEUKAEMIA
     Dosage: 160 MG, 1X/DAY
     Route: 041
     Dates: start: 20180714, end: 20180720
  2. ZAVEDOS [Suspect]
     Active Substance: IDARUBICIN
     Dosage: 13 MG, 1X/DAY
     Route: 040
     Dates: start: 20180714, end: 20180718
  3. FASTURTEC [Concomitant]
     Active Substance: RASBURICASE
     Indication: TUMOUR LYSIS SYNDROME
     Dosage: 1 DF, UNK
     Route: 042
     Dates: start: 20180714, end: 20180714
  4. BELUSTINE [Suspect]
     Active Substance: LOMUSTINE
     Indication: ACUTE MYELOID LEUKAEMIA
     Dosage: 320 MG, 1X/DAY
     Route: 048
     Dates: start: 20180714, end: 20180714

REACTIONS (1)
  - Left ventricular failure [Not Recovered/Not Resolved]

NARRATIVE: CASE EVENT DATE: 20180802
